FAERS Safety Report 5804621-0 (Version None)
Quarter: 2008Q3

REPORT INFORMATION
  Report Type: 
  Country: None (occurrence: None)
  Receive Date: 20080702
  Receipt Date: 20080305
  Transmission Date: 20090109
  Serious: Yes (Other)
  Sender: FDA-Public Use
  Company Number: 551222

PATIENT
  Age: 39 Year
  Sex: Female
  Weight: 63.5 kg

DRUGS (10)
  1. KLONOPIN [Suspect]
     Indication: SLEEP DISORDER
     Dosage: 3 MG
     Dates: start: 20080201
  2. ALPRAZOLAM [Suspect]
     Indication: SLEEP DISORDER
     Dosage: 0.75 MG 1 PER DAY
     Dates: start: 20080105
  3. SYNTHROID [Concomitant]
  4. CENESTIN [Concomitant]
  5. ACIPHEX [Concomitant]
  6. ZOCOR [Concomitant]
  7. SOMA [Concomitant]
  8. NORCO [Concomitant]
  9. FLEXERIL (OXYCODONE/PARACETAMOL) [Concomitant]
  10. PERCOCET (OXYCODONE/PARACETAMOL) [Concomitant]

REACTIONS (5)
  - ABNORMAL BEHAVIOUR [None]
  - AMNESIA [None]
  - GAIT DISTURBANCE [None]
  - PAIN IN EXTREMITY [None]
  - WEIGHT INCREASED [None]
